FAERS Safety Report 9071459 (Version 1)
Quarter: 2013Q1

REPORT INFORMATION
  Report Type: Report from Study
  Country: US (occurrence: US)
  Receive Date: 20130129
  Receipt Date: 20130129
  Transmission Date: 20140127
  Serious: No
  Sender: FDA-Public Use
  Company Number: US-ABBOTT-12P-163-0929982-00

PATIENT
  Age: 41 Year
  Sex: Female

DRUGS (5)
  1. HUMIRA 40 MG/0.8 ML PEN [Suspect]
     Indication: RHEUMATOID ARTHRITIS
     Dates: start: 201202, end: 20120412
  2. METHOTREXATE [Concomitant]
     Indication: RHEUMATOID ARTHRITIS
     Dosage: 0.6MLS WEEKLY
  3. TOPAMAX [Concomitant]
     Indication: MIGRAINE
     Dosage: 2 TABS IN AM AND 2 TABS IN PM
     Route: 048
  4. FOLIC ACID [Concomitant]
     Indication: RHEUMATOID ARTHRITIS
     Dosage: DAILY
  5. ALLEGRA [Concomitant]
     Indication: HYPERSENSITIVITY
     Dosage: DAILY
     Route: 048

REACTIONS (9)
  - Malaise [Not Recovered/Not Resolved]
  - Headache [Unknown]
  - Back pain [Unknown]
  - Cough [Recovered/Resolved]
  - Respiratory tract infection [Recovered/Resolved]
  - Paranasal sinus hypersecretion [Recovered/Resolved]
  - Rhinorrhoea [Recovered/Resolved]
  - Wound [Unknown]
  - Localised infection [Unknown]
